FAERS Safety Report 7938667-3 (Version None)
Quarter: 2011Q4

REPORT INFORMATION
  Report Type: 
  Country: None (occurrence: None)
  Receive Date: 20111123
  Receipt Date: 20111110
  Transmission Date: 20120403
  Serious: Yes (Hospitalization)
  Sender: FDA-Public Use
  Company Number: US-ROCHE-1012336

PATIENT
  Sex: Female

DRUGS (3)
  1. PREDNISONE TAB [Suspect]
     Indication: IMMUNOSUPPRESSION
     Route: 065
     Dates: start: 20060511
  2. MYCOPHENOLATE MOFETIL (CELLCEPT) [Suspect]
     Indication: IMMUNOSUPPRESSION
     Route: 065
     Dates: start: 20060509
  3. BELATACEPT [Suspect]
     Indication: IMMUNOSUPPRESSION
     Route: 042
     Dates: start: 20060509

REACTIONS (2)
  - COMPLICATIONS OF TRANSPLANTED KIDNEY [None]
  - ESCHERICHIA URINARY TRACT INFECTION [None]
